FAERS Safety Report 7659145-5 (Version None)
Quarter: 2011Q3

REPORT INFORMATION
  Report Type: 
  Country: None (occurrence: None)
  Receive Date: 20110805
  Receipt Date: 20110729
  Transmission Date: 20111222
  Serious: Yes (Hospitalization)
  Sender: FDA-Public Use
  Company Number: US-GLAXOSMITHKLINE-A0939698A

PATIENT
  Age: 50 Year
  Sex: Female

DRUGS (4)
  1. AMPYRA [Suspect]
     Indication: GAIT DISTURBANCE
     Dosage: 10MG UNKNOWN
     Route: 065
     Dates: start: 20101001, end: 20110601
  2. BUPROPION HCL [Suspect]
     Indication: DEPRESSION
     Dosage: 150MG PER DAY
     Route: 065
     Dates: end: 20110601
  3. TRAMADOL HCL [Suspect]
     Indication: PAIN
     Route: 065
     Dates: end: 20110601
  4. TYSABRI [Concomitant]

REACTIONS (8)
  - MOUTH INJURY [None]
  - FALL [None]
  - CONVULSION [None]
  - AGGRESSION [None]
  - DRUG INEFFECTIVE [None]
  - LOSS OF CONSCIOUSNESS [None]
  - DYSARTHRIA [None]
  - MEMORY IMPAIRMENT [None]
